FAERS Safety Report 12590400 (Version 2)
Quarter: 2016Q4

REPORT INFORMATION
  Report Type: Spontaneous
  Country: US (occurrence: US)
  Receive Date: 20160725
  Receipt Date: 20161024
  Transmission Date: 20170207
  Serious: Yes (Other)
  Sender: FDA-Public Use
  Company Number: US-CELGENEUS-USA-2016065163

PATIENT
  Sex: Male

DRUGS (2)
  1. REVLIMID [Suspect]
     Active Substance: LENALIDOMIDE
     Indication: PLASMA CELL MYELOMA
     Route: 048
     Dates: start: 201503
  2. REVLIMID [Suspect]
     Active Substance: LENALIDOMIDE
     Route: 048
     Dates: start: 20160601

REACTIONS (5)
  - Fatigue [Not Recovered/Not Resolved]
  - Renal impairment [Unknown]
  - Disorientation [Not Recovered/Not Resolved]
  - Fluid retention [Unknown]
  - Dizziness [Not Recovered/Not Resolved]
